FAERS Safety Report 4325853-7 (Version None)
Quarter: 2004Q1

REPORT INFORMATION
  Report Type: 
  Country: None (occurrence: None)
  Receive Date: 20040323
  Receipt Date: 20040310
  Transmission Date: 20041129
  Serious: Yes (Other)
  Sender: FDA-Public Use
  Company Number: US-JNJFOC-20040302498

PATIENT
  Sex: Male

DRUGS (1)
  1. REMICADE [Suspect]
     Indication: ARTHRITIS
     Dosage: INTRAVENOUS
     Route: 042

REACTIONS (2)
  - BRONCHITIS [None]
  - TUBERCULOSIS [None]
